FAERS Safety Report 9296441 (Version 1)
Quarter: 2013Q2

REPORT INFORMATION
  Report Type: Report from Study
  Country: CA (occurrence: CA)
  Receive Date: 20130517
  Receipt Date: 20130517
  Transmission Date: 20140414
  Serious: Yes (Other)
  Sender: FDA-Public Use
  Company Number: CA-JNJFOC-20130506385

PATIENT
  Age: 84 Year
  Sex: Female
  Weight: 68.04 kg

DRUGS (3)
  1. STELARA [Suspect]
     Indication: PSORIASIS
     Route: 058
  2. METHOTREXATE [Concomitant]
  3. SORIATANE [Concomitant]

REACTIONS (1)
  - Autoimmune disorder [Unknown]
